FAERS Safety Report 10078845 (Version 1)
Quarter: 2014Q2

REPORT INFORMATION
  Report Type: Report from Study
  Country: US (occurrence: US)
  Receive Date: 20140415
  Receipt Date: 20140415
  Transmission Date: 20141212
  Serious: Yes (Other)
  Sender: FDA-Public Use
  Company Number: US-JNJFOC-20140405720

PATIENT
  Age: 78 Year
  Sex: Female
  Weight: 50.8 kg

DRUGS (17)
  1. REMICADE [Suspect]
     Indication: RHEUMATOID ARTHRITIS
     Route: 042
  2. REMICADE [Suspect]
     Indication: RHEUMATOID ARTHRITIS
     Route: 042
  3. GLIPIZIDE [Concomitant]
     Indication: DIABETES MELLITUS
     Route: 048
  4. JANUVIA [Concomitant]
     Indication: DIABETES MELLITUS
     Route: 048
  5. LEVOTHYROXINE [Concomitant]
     Route: 048
  6. SIMVASTATIN [Concomitant]
     Route: 048
  7. PLAQUENIL [Concomitant]
     Indication: ARTHRITIS
     Route: 048
  8. CELEBREX [Concomitant]
     Indication: ARTHRITIS
     Route: 048
  9. CARTIA [Concomitant]
     Indication: TACHYCARDIA
     Route: 048
  10. CARTIA [Concomitant]
     Indication: MYOCARDIAL INFARCTION
     Route: 048
  11. DIGOXIN [Concomitant]
     Route: 048
  12. AMLODIPINE [Concomitant]
     Route: 048
  13. VITAMIN D3 [Concomitant]
     Route: 048
  14. ADVAIR [Concomitant]
     Indication: RESPIRATORY DISORDER
     Route: 065
  15. NASONEX [Concomitant]
     Indication: SINUS DISORDER
     Route: 065
  16. LAXATIVE [Concomitant]
     Indication: ABNORMAL FAECES
     Route: 065
  17. EYE DROPS [Concomitant]
     Indication: DRY EYE
     Route: 065

REACTIONS (4)
  - Depression [Unknown]
  - Psoriatic arthropathy [Not Recovered/Not Resolved]
  - Rheumatoid arthritis [Recovered/Resolved]
  - Respiratory tract infection [Unknown]
